FAERS Safety Report 17933323 (Version 5)
Quarter: 2020Q3

REPORT INFORMATION
  Report Type: Spontaneous
  Country: US (occurrence: US)
  Receive Date: 20200623
  Receipt Date: 20200715
  Transmission Date: 20201103
  Serious: Yes (Other)
  Sender: FDA-Public Use
  Company Number: US-PFIZER INC-2020239363

PATIENT
  Age: 63 Year
  Sex: Female
  Weight: 81.65 kg

DRUGS (4)
  1. MARPLAN [ISOCARBOXAZID] [Concomitant]
     Indication: DEPRESSION
     Dosage: UNK
     Dates: end: 1994
  2. RITALIN [Concomitant]
     Active Substance: METHYLPHENIDATE HYDROCHLORIDE
     Indication: ATTENTION DEFICIT HYPERACTIVITY DISORDER
     Dosage: UNK
  3. NARDIL [Suspect]
     Active Substance: PHENELZINE SULFATE
     Indication: DEPRESSION
     Dosage: 45 MG, DAILY
  4. NARDIL [Suspect]
     Active Substance: PHENELZINE SULFATE
     Dosage: UNK, DAILY (45?60 MG/DAY)
     Route: 048
     Dates: start: 2015

REACTIONS (2)
  - Suicidal behaviour [Recovered/Resolved]
  - Weight increased [Unknown]
